FAERS Safety Report 10400771 (Version 1)
Quarter: 2014Q3

REPORT INFORMATION
  Report Type: Spontaneous
  Country: US (occurrence: US)
  Receive Date: 20140821
  Receipt Date: 20140821
  Transmission Date: 20150326
  Serious: Yes (Hospitalization, Other)
  Sender: FDA-Public Use
  Company Number: US-B.I. PHARMACEUTICALS,INC./RIDGEFIELD-2014-BI-37935BP

PATIENT
  Age: 85 Year
  Sex: Female

DRUGS (8)
  1. PRADAXA [Suspect]
     Active Substance: DABIGATRAN ETEXILATE MESYLATE
     Indication: ATRIAL FIBRILLATION
     Dosage: 150 MG
     Route: 048
     Dates: start: 20110811, end: 20130118
  2. FUROSEMIDE. [Concomitant]
     Active Substance: FUROSEMIDE
     Dosage: 20 MG
     Route: 065
  3. NITROGLYCERINE [Concomitant]
     Active Substance: NITROGLYCERIN
     Route: 065
  4. AMLODIPINE [Concomitant]
     Active Substance: AMLODIPINE BESYLATE
     Dosage: 2.5 MG
     Route: 065
  5. VITAMIN D [Concomitant]
     Active Substance: CHOLECALCIFEROL
     Dosage: 2000 U
     Route: 065
  6. METOPROLOL [Concomitant]
     Active Substance: METOPROLOL
     Dosage: 50 MG
     Route: 065
  7. XALATAN [Concomitant]
     Active Substance: LATANOPROST
     Indication: GLAUCOMA
     Dosage: STRENGTH: 0.005%, DOSE: 1 DROP
     Route: 065
  8. MULTIPLE VITAMIN [Concomitant]
     Active Substance: VITAMINS
     Route: 065

REACTIONS (3)
  - Haemorrhagic anaemia [Not Recovered/Not Resolved]
  - Hypotension [Unknown]
  - Epistaxis [Recovered/Resolved]

NARRATIVE: CASE EVENT DATE: 20130118
